FAERS Safety Report 19313877 (Version 2)
Quarter: 2021Q3

REPORT INFORMATION
  Report Type: Spontaneous
  Country: DE (occurrence: DE)
  Receive Date: 20210527
  Receipt Date: 20210708
  Transmission Date: 20211014
  Serious: Yes (Hospitalization, Other)
  Sender: FDA-Public Use
  Company Number: DE-BAYER-2021-144823

PATIENT
  Age: 63 Year

DRUGS (2)
  1. BETAFERON [Suspect]
     Active Substance: INTERFERON BETA-1B
     Indication: MULTIPLE SCLEROSIS
     Dosage: UNK
  2. REBIF [Suspect]
     Active Substance: INTERFERON BETA-1A

REACTIONS (7)
  - Pleural effusion [None]
  - Pneumonia [None]
  - Cardiac failure acute [Recovering/Resolving]
  - Hyponatraemia [None]
  - Hypertension [None]
  - Chronic kidney disease [None]
  - Atypical haemolytic uraemic syndrome [None]

NARRATIVE: CASE EVENT DATE: 202105
